FAERS Safety Report 17067853 (Version 1)
Quarter: 2019Q4

REPORT INFORMATION
  Report Type: Report from Study
  Country: US (occurrence: US)
  Receive Date: 20191122
  Receipt Date: 20191122
  Transmission Date: 20200122
  Serious: Yes (Congenital Anomaly, Other)
  Sender: FDA-Public Use
  Company Number: NVSC2019US043454

PATIENT
  Sex: Female
  Weight: 3.68 kg

DRUGS (1)
  1. GILENYA [Suspect]
     Active Substance: FINGOLIMOD HYDROCHLORIDE
     Indication: FOETAL EXPOSURE DURING PREGNANCY
     Dosage: FETAL DRUG EXPOSURE VIA PARTNER: 0.5 MG QD
     Route: 064

REACTIONS (6)
  - Low set ears [Unknown]
  - Exposure via father [Unknown]
  - Ankyloglossia congenital [Unknown]
  - Respiratory distress [Unknown]
  - Cardiac murmur [Unknown]
  - Premature baby [Unknown]
